FAERS Safety Report 7795065-3 (Version None)
Quarter: 2011Q4

REPORT INFORMATION
  Report Type: 
  Country: None (occurrence: None)
  Receive Date: 20111003
  Receipt Date: 20111003
  Transmission Date: 20120403
  Serious: Yes (Life-Threatening)
  Sender: FDA-Public Use
  Company Number: None

PATIENT
  Age: 81 Year
  Sex: Male
  Weight: 93.3 kg

DRUGS (1)
  1. INSULIN [Suspect]
     Dates: start: 20110912

REACTIONS (3)
  - FALL [None]
  - WRONG DRUG ADMINISTERED [None]
  - HYPOGLYCAEMIA [None]
